FAERS Safety Report 4731979-6 (Version None)
Quarter: 2005Q3

REPORT INFORMATION
  Report Type: 
  Country: None (occurrence: None)
  Receive Date: 20050722
  Receipt Date: 20040603
  Transmission Date: 20060218
  Serious: Yes (Other)
  Sender: FDA-Public Use
  Company Number: 04-000372

PATIENT
  Sex: Female

DRUGS (5)
  1. FEMHRT [Suspect]
  2. PREMPRO [Suspect]
  3. PREMARIN [Suspect]
  4. MEDROXYPROGESTERONE ACETATE [Suspect]
  5. ESTRATEST [Suspect]

REACTIONS (2)
  - DEEP VEIN THROMBOSIS [None]
  - PULMONARY EMBOLISM [None]
